APPROVED DRUG PRODUCT: CEFTAZIDIME
Active Ingredient: CEFTAZIDIME
Strength: 500MG/VIAL
Dosage Form/Route: INJECTABLE;INJECTION
Application: A062640 | Product #001
Applicant: ACS DOBFAR SPA
Approved: Nov 20, 1985 | RLD: No | RS: No | Type: DISCN